FAERS Safety Report 4895643-5 (Version None)
Quarter: 2006Q1

REPORT INFORMATION
  Report Type: 
  Country: None (occurrence: None)
  Receive Date: 20060125
  Receipt Date: 20060113
  Transmission Date: 20060701
  Serious: Yes (Hospitalization)
  Sender: FDA-Public Use
  Company Number: KII-2006-0020731

PATIENT
  Sex: Male

DRUGS (3)
  1. OXYCODONE HCL [Suspect]
     Dosage: ORAL
     Route: 048
  2. ANTIEPILEPTICS () [Suspect]
     Dosage: ORAL
     Route: 048
  3. SSRI () [Suspect]
     Dosage: ORAL
     Route: 048

REACTIONS (3)
  - HEAD INJURY [None]
  - MULTIPLE DRUG OVERDOSE [None]
  - TREMOR [None]
